FAERS Safety Report 15315868 (Version 2)
Quarter: 2018Q3

REPORT INFORMATION
  Report Type: Report from Study
  Country: ZA (occurrence: ZA)
  Receive Date: 20180824
  Receipt Date: 20180914
  Transmission Date: 20181010
  Serious: Yes (Hospitalization)
  Sender: FDA-Public Use
  Company Number: PHHY2017ZA161815

PATIENT
  Age: 29 Year
  Sex: Female

DRUGS (4)
  1. DESFERAL [Suspect]
     Active Substance: DEFEROXAMINE MESYLATE
     Dosage: 5 VIALS, 4 TIMES PER WEEK
     Route: 065
  2. DESFERAL [Suspect]
     Active Substance: DEFEROXAMINE MESYLATE
     Indication: THALASSAEMIA
     Dosage: 5 VIALS 3X PER WEEK
     Route: 065
     Dates: start: 1990
  3. FERIPROX [Concomitant]
     Active Substance: DEFERIPRONE
     Indication: IRON OVERLOAD
     Dosage: 6 DF, QD
     Route: 065
     Dates: start: 2012
  4. EXJADE [Suspect]
     Active Substance: DEFERASIROX
     Indication: THALASSAEMIA
     Dosage: 1250 MG, QD
     Route: 065
     Dates: start: 201805

REACTIONS (4)
  - Serum ferritin increased [Unknown]
  - Constipation [Not Recovered/Not Resolved]
  - Rash [Recovered/Resolved]
  - Viral infection [Recovered/Resolved]

NARRATIVE: CASE EVENT DATE: 20180331
